FAERS Safety Report 25805728 (Version 3)
Quarter: 2025Q4

REPORT INFORMATION
  Report Type: Spontaneous
  Country: JP (occurrence: JP)
  Receive Date: 20250916
  Receipt Date: 20251117
  Transmission Date: 20260117
  Serious: Yes (Hospitalization)
  Sender: GLAXOSMITHKLINE
  Company Number: JP-GSKJP-JP2025JPN116168AA

PATIENT
  Sex: Male

DRUGS (1)
  1. DAPRODUSTAT [Suspect]
     Active Substance: DAPRODUSTAT
     Indication: Nephrogenic anaemia
     Dosage: UNK

REACTIONS (2)
  - Coronavirus infection [Unknown]
  - Gastrostomy [Unknown]
